FAERS Safety Report 19114862 (Version 3)
Quarter: 2021Q2

REPORT INFORMATION
  Report Type: Report from Study
  Country: CH (occurrence: CH)
  Receive Date: 20210409
  Receipt Date: 20210519
  Transmission Date: 20210717
  Serious: No
  Sender: FDA-Public Use
  Company Number: CH-BAYER-2020-013624

PATIENT

DRUGS (4)
  1. GADOBUTROL. [Suspect]
     Active Substance: GADOBUTROL
     Dosage: UNK
  2. PARACETAMOL [Concomitant]
     Active Substance: ACETAMINOPHEN
  3. IBUPROFEN. [Concomitant]
     Active Substance: IBUPROFEN
  4. CIPROFLOXACIN. [Concomitant]
     Active Substance: CIPROFLOXACIN

REACTIONS (1)
  - Rash maculo-papular [None]
